FAERS Safety Report 7271848-3 (Version None)
Quarter: 2011Q1

REPORT INFORMATION
  Report Type: 
  Country: None (occurrence: None)
  Receive Date: 20110203
  Receipt Date: 20110128
  Transmission Date: 20110831
  Serious: No
  Sender: FDA-Public Use
  Company Number: FR-SANOFI-AVENTIS-2011SA002911

PATIENT
  Sex: Female

DRUGS (3)
  1. ARAVA [Suspect]
     Indication: RHEUMATOID ARTHRITIS
     Route: 048
     Dates: start: 20100701
  2. HYPERICUM PERFORATUM [Concomitant]
  3. ORAL CONTRACEPTIVE NOS [Concomitant]
     Route: 048

REACTIONS (1)
  - DRUG EXPOSURE DURING PREGNANCY [None]
